FAERS Safety Report 4624655-1 (Version None)
Quarter: 2005Q1

REPORT INFORMATION
  Report Type: 
  Country: None (occurrence: None)
  Receive Date: 20050107
  Receipt Date: 20040914
  Transmission Date: 20050727
  Serious: No
  Sender: FDA-Public Use
  Company Number: 234635K04USA

PATIENT
  Age: 59 Year
  Sex: Male

DRUGS (6)
  1. REBIF [Suspect]
     Indication: MULTIPLE SCLEROSIS
     Dosage: 44 MCG, 3 IN 1 WEEKS
     Dates: start: 20040804
  2. MODAFINIL [Suspect]
     Dates: start: 20040701
  3. HYTRIN [Concomitant]
  4. TOPROL (METOPROLOL) [Concomitant]
  5. SIMVASTATIN [Concomitant]
  6. ASPIRIN (SALICYLIC ACID) [Concomitant]

REACTIONS (8)
  - ANOREXIA [None]
  - CONDITION AGGRAVATED [None]
  - DIARRHOEA [None]
  - HYPOKALAEMIA [None]
  - MYALGIA [None]
  - PAIN IN EXTREMITY [None]
  - PARAESTHESIA [None]
  - WEIGHT DECREASED [None]
